FAERS Safety Report 8338893-8 (Version None)
Quarter: 2012Q2

REPORT INFORMATION
  Report Type: 
  Country: None (occurrence: None)
  Receive Date: 20120506
  Receipt Date: 20120417
  Transmission Date: 20120825
  Serious: Yes (Hospitalization)
  Sender: FDA-Public Use
  Company Number: PHEH2012US008360

PATIENT
  Sex: Male

DRUGS (1)
  1. TEKAMLO [Suspect]
     Dosage: UNK UKN, UNK

REACTIONS (1)
  - EYE HAEMORRHAGE [None]
